FAERS Safety Report 13147000 (Version 2)
Quarter: 2017Q1

REPORT INFORMATION
  Report Type: Spontaneous
  Country: US (occurrence: US)
  Receive Date: 20170124
  Receipt Date: 20170124
  Transmission Date: 20170428
  Serious: No
  Sender: FDA-Public Use
  Company Number: US-AMGEN-USASP2016052135

PATIENT
  Age: 69 Year
  Sex: Female
  Weight: 55.78 kg

DRUGS (10)
  1. VITAMIN K2 [Concomitant]
     Active Substance: MENAQUINONE 6
     Dosage: 100 MUG, UNK
     Route: 048
     Dates: start: 20150711
  2. FISH OIL [Concomitant]
     Active Substance: FISH OIL
     Dosage: 1200 MG, UNK
     Route: 048
     Dates: start: 20150701
  3. REPATHA [Suspect]
     Active Substance: EVOLOCUMAB
     Indication: HYPERLIPIDAEMIA
     Dosage: 140 MG, Q2WK
     Route: 065
     Dates: start: 20160215
  4. MULTIVITAMINS [Concomitant]
     Active Substance: VITAMINS
     Dosage: UNK, QD
     Route: 048
     Dates: start: 20150701
  5. VITAMIN B12 [Concomitant]
     Active Substance: CYANOCOBALAMIN
     Dosage: 5000 MUG, UNK
     Dates: start: 20150701
  6. COQ10 [Concomitant]
     Active Substance: UBIDECARENONE
     Dosage: 100 MG, UNK
     Route: 048
     Dates: start: 20150701
  7. SERTLINE [Concomitant]
     Dosage: 25 MG, QD
     Route: 048
     Dates: start: 20160111
  8. REPATHA [Suspect]
     Active Substance: EVOLOCUMAB
     Indication: HYPERCHOLESTEROLAEMIA
  9. OSTEO BI-FLEX [Concomitant]
     Active Substance: CHONDROITIN SULFATE A\GLUCOSAMINE
     Dosage: UNK UNK, QD
     Route: 048
     Dates: start: 20150701
  10. VITAMIN D [Concomitant]
     Active Substance: CHOLECALCIFEROL
     Dosage: 10000 UNIT, UNK
     Route: 048
     Dates: start: 20150701

REACTIONS (2)
  - Rhinorrhoea [Recovered/Resolved]
  - Drug effect incomplete [Unknown]

NARRATIVE: CASE EVENT DATE: 201605
